FAERS Safety Report 10922544 (Version 1)
Quarter: 2015Q1

REPORT INFORMATION
  Report Type: Spontaneous
  Country: BR (occurrence: BR)
  Receive Date: 20150317
  Receipt Date: 20150317
  Transmission Date: 20150721
  Serious: Yes (Other)
  Sender: FDA-Public Use
  Company Number: BR-PFIZER INC-2015092374

PATIENT
  Age: 44 Year
  Sex: Female

DRUGS (1)
  1. SERTRALINE HCL [Suspect]
     Active Substance: SERTRALINE HYDROCHLORIDE
     Indication: ANXIETY
     Dosage: UNK
     Dates: start: 201311

REACTIONS (6)
  - Blindness [Unknown]
  - Infarction [Unknown]
  - Anxiety [Unknown]
  - Hypoaesthesia [Unknown]
  - Dizziness [Unknown]
  - Tachycardia [Unknown]
